FAERS Safety Report 23938900 (Version 1)
Quarter: 2024Q2

REPORT INFORMATION
  Report Type: Spontaneous
  Country: CO (occurrence: CO)
  Receive Date: 20240604
  Receipt Date: 20240604
  Transmission Date: 20240715
  Serious: Yes (Other)
  Sender: FDA-Public Use
  Company Number: CO-SANDOZ-SDZ2024CO053761

PATIENT
  Sex: Female

DRUGS (5)
  1. APIXABAN [Suspect]
     Active Substance: APIXABAN
     Indication: Product used for unknown indication
     Dosage: UNK
     Route: 065
  2. CARVEDILOL [Suspect]
     Active Substance: CARVEDILOL
     Indication: Product used for unknown indication
     Dosage: UNK
     Route: 065
  3. ELIQUIS [Suspect]
     Active Substance: APIXABAN
     Indication: Product used for unknown indication
     Dosage: 5 MG, BID,  2 INHALERS 2 PUFFS EVERY 8 HOURS
     Route: 065
  4. MONTELUKAST SODIUM [Suspect]
     Active Substance: MONTELUKAST SODIUM
     Indication: Product used for unknown indication
     Dosage: 5 MG, QD
     Route: 048
  5. XOLAIR [Suspect]
     Active Substance: OMALIZUMAB
     Indication: Product used for unknown indication
     Dosage: UNK
     Route: 065
     Dates: start: 20240529

REACTIONS (3)
  - Choking [Recovering/Resolving]
  - Dyspnoea [Recovering/Resolving]
  - Fatigue [Recovering/Resolving]
